FAERS Safety Report 7459459-8 (Version None)
Quarter: 2011Q2

REPORT INFORMATION
  Report Type: 
  Country: None (occurrence: None)
  Receive Date: 20110505
  Receipt Date: 20110421
  Transmission Date: 20111010
  Serious: Yes (Other)
  Sender: FDA-Public Use
  Company Number: CA-JNJFOC-20110410862

PATIENT
  Sex: Female
  Weight: 93.44 kg

DRUGS (6)
  1. REMICADE [Suspect]
     Route: 042
  2. IMURAN [Concomitant]
     Route: 048
  3. REMICADE [Suspect]
     Indication: CROHN'S DISEASE
     Route: 042
  4. BENADRYL [Concomitant]
     Indication: PREMEDICATION
  5. HYDROCORTISONE [Concomitant]
     Indication: PREMEDICATION
  6. REMICADE [Suspect]
     Route: 042

REACTIONS (8)
  - CHEST DISCOMFORT [None]
  - URTICARIA [None]
  - COUGH [None]
  - LIP SWELLING [None]
  - PARAESTHESIA ORAL [None]
  - GAIT DISTURBANCE [None]
  - FLUSHING [None]
  - INFUSION RELATED REACTION [None]
